FAERS Safety Report 8566324-1 (Version None)
Quarter: 2012Q3

REPORT INFORMATION
  Report Type: 
  Country: None (occurrence: None)
  Receive Date: 20120730
  Receipt Date: 20120730
  Transmission Date: 20120928
  Serious: Yes (Life-Threatening)
  Sender: FDA-Public Use
  Company Number: None

PATIENT
  Age: 79 Year
  Sex: Male
  Weight: 79.1 kg

DRUGS (2)
  1. PIPERACILLIN AND TAZOBACTAM [Suspect]
     Dosage: 3.375 GM QID IV
     Route: 042
     Dates: start: 20120510, end: 20120510
  2. VANCOMYCIN [Suspect]
     Indication: CELLULITIS
     Dosage: 1 GM EVERY DAY IV
     Route: 042
     Dates: start: 20120510, end: 20120510

REACTIONS (2)
  - CARDIO-RESPIRATORY ARREST [None]
  - ANAPHYLACTIC REACTION [None]
